FAERS Safety Report 4634289-0 (Version None)
Quarter: 2005Q2

REPORT INFORMATION
  Report Type: 
  Country: None (occurrence: None)
  Receive Date: 20050413
  Receipt Date: 20050225
  Transmission Date: 20051028
  Serious: Yes (Hospitalization, Other)
  Sender: FDA-Public Use
  Company Number: PHBS2005JP03022

PATIENT
  Age: 84 Year
  Sex: Male

DRUGS (10)
  1. TEGRETOL [Suspect]
     Indication: EPILEPSY
     Dosage: 200 MG/DAY
     Route: 048
     Dates: start: 20050129, end: 20050204
  2. TEGRETOL [Suspect]
     Dosage: 300 MG/DAY
     Route: 048
     Dates: start: 20050205, end: 20050221
  3. EXCEGRAN [Suspect]
     Indication: EPILEPSY
     Dosage: UNK, UNK
     Route: 048
     Dates: start: 20040101, end: 20050129
  4. EXCEGRAN [Suspect]
     Dosage: 100 MG/DAY
     Dates: start: 20050214, end: 20050221
  5. CILOSTAZOL [Concomitant]
     Indication: CEREBROVASCULAR DISORDER
     Dosage: 100 MG/DAY
     Route: 048
     Dates: start: 20040801
  6. FRANDOL [Concomitant]
     Indication: ANGINA PECTORIS
     Dosage: 60 MG/DAY
     Route: 048
  7. CHLORMADINONE ACETATE TAB [Concomitant]
     Indication: PROSTATE CANCER
     Dosage: 200 MG/DAY
     Route: 048
     Dates: start: 20010601
  8. KLARICID [Concomitant]
     Indication: DIFFUSE PANBRONCHIOLITIS
     Dosage: 200 MG/DAY
     Route: 048
  9. GLYNATE [Concomitant]
     Indication: GASTRITIS
     Dosage: 1.5 G/DAY
     Route: 048
  10. LEUPLIN [Concomitant]
     Indication: PROSTATE CANCER
     Dosage: 1 DF/DAY
     Route: 065

REACTIONS (9)
  - ASPARTATE AMINOTRANSFERASE INCREASED [None]
  - BLOOD GLUCOSE INCREASED [None]
  - C-REACTIVE PROTEIN INCREASED [None]
  - CEREBRAL ISCHAEMIA [None]
  - CONVULSION [None]
  - DRUG ERUPTION [None]
  - HERPES VIRUS INFECTION [None]
  - RASH GENERALISED [None]
  - STOMATITIS [None]
